FAERS Safety Report 8857788 (Version 4)
Quarter: 2013Q3

REPORT INFORMATION
  Report Type: Spontaneous
  Country: DE (occurrence: DE)
  Receive Date: 20121024
  Receipt Date: 20130807
  Transmission Date: 20140515
  Serious: Yes (Other)
  Sender: FDA-Public Use
  Company Number: DE-BAUSCH-BL-2012-000636

PATIENT
  Age: 20 Year
  Sex: Male

DRUGS (1)
  1. DEXA EDO [Suspect]
     Indication: HORDEOLUM
     Route: 047
     Dates: start: 201207, end: 201207

REACTIONS (4)
  - Mydriasis [Recovered/Resolved]
  - Accommodation disorder [Recovering/Resolving]
  - Dry eye [Unknown]
  - Foreign body sensation in eyes [Unknown]
